FAERS Safety Report 17346502 (Version 1)
Quarter: 2020Q1

REPORT INFORMATION
  Report Type: Report from Study
  Country: US (occurrence: US)
  Receive Date: 20200129
  Receipt Date: 20200129
  Transmission Date: 20200409
  Serious: No
  Sender: FDA-Public Use
  Company Number: US-EXELIXIS-CABO-19022997

PATIENT
  Age: 62 Year
  Sex: Female
  Weight: 77.1 kg

DRUGS (6)
  1. CABOMETYX [Suspect]
     Active Substance: CABOZANTINIB S-MALATE
     Indication: RENAL CELL CARCINOMA
     Dosage: 60 MG, QD
     Route: 048
     Dates: start: 20190716, end: 20190903
  2. CABOMETYX [Suspect]
     Active Substance: CABOZANTINIB S-MALATE
     Dosage: 40 MG, QD
     Route: 048
     Dates: start: 201909
  3. ZOFRAN [Concomitant]
     Active Substance: ONDANSETRON HYDROCHLORIDE
  4. PRILOSEC [Concomitant]
     Active Substance: OMEPRAZOLE MAGNESIUM
  5. IMODIUM A-D [Concomitant]
     Active Substance: LOPERAMIDE HYDROCHLORIDE
  6. XGEVA [Suspect]
     Active Substance: DENOSUMAB
     Indication: PRODUCT USED FOR UNKNOWN INDICATION
     Dosage: UNK

REACTIONS (18)
  - Burning sensation [Not Recovered/Not Resolved]
  - Tenderness [Unknown]
  - Eating disorder [Unknown]
  - Blister [Recovering/Resolving]
  - Impaired healing [Unknown]
  - Alopecia [Unknown]
  - Gait inability [Unknown]
  - Dermatitis [Unknown]
  - Skin fissures [Unknown]
  - Diarrhoea [Unknown]
  - Oral discomfort [Not Recovered/Not Resolved]
  - Taste disorder [Unknown]
  - Dry skin [Unknown]
  - Blood calcium increased [Recovering/Resolving]
  - Nasal mucosal blistering [Unknown]
  - Rash [Recovering/Resolving]
  - Hypertension [Not Recovered/Not Resolved]
  - Skin exfoliation [Unknown]

NARRATIVE: CASE EVENT DATE: 201907
